FAERS Safety Report 8402529-8 (Version None)
Quarter: 2012Q1

REPORT INFORMATION
  Report Type: 
  Country: None (occurrence: None)
  Receive Date: 20120323
  Receipt Date: 20110419
  Transmission Date: 20120608
  Serious: Yes (Hospitalization, Other)
  Sender: FDA-Public Use
  Company Number: 163-21880-10091675

PATIENT
  Age: 43 Year
  Sex: Female

DRUGS (21)
  1. ETOPOSIDE [Concomitant]
  2. AMBIEN [Concomitant]
  3. LISINOPRIL [Concomitant]
  4. CISPLATIN [Concomitant]
  5. FUROSEMIDE [Concomitant]
  6. NEUPOGEN (FILGRASTIM) (UNKNOWN) [Concomitant]
  7. VICODIN [Concomitant]
  8. OMEPRAZOLE [Concomitant]
  9. LOMOTIL (LOMOTIL) (UNKNOWN) [Concomitant]
  10. K-DUR (POTASSIUM CHLORIDE) (UNKNOWN) [Concomitant]
  11. DILAUDID [Concomitant]
  12. DOXORUBICIN HCL [Concomitant]
  13. CYTOXAN [Concomitant]
  14. ZOFRAN [Concomitant]
  15. AREDIA [Concomitant]
  16. REVLIMID [Suspect]
     Indication: MULTIPLE MYELOMA
     Dosage: 10 MG, QD Q28D, PO
     Route: 048
     Dates: start: 20090801, end: 20100915
  17. HCTZ (HYDROCHLOROTHIAZIDE) (UNKNOWN) [Concomitant]
  18. METOPROLOL TARTRATE [Concomitant]
  19. MAGIC MOUTHWASH (ALL OTHER THERAPEUTIC PRODUCTS) (UNKNOWN) [Concomitant]
  20. LEXAPRO (ESCITALOPRAM OXALATE) (UNKNOWN) [Concomitant]
  21. DIAZEPAM [Concomitant]

REACTIONS (3)
  - PLATELET COUNT DECREASED [None]
  - MULTIPLE MYELOMA [None]
  - HAEMOGLOBIN DECREASED [None]
